FAERS Safety Report 9777144 (Version 1)
Quarter: 2013Q4

REPORT INFORMATION
  Report Type: Report from Study
  Country: US (occurrence: US)
  Receive Date: 20131221
  Receipt Date: 20131221
  Transmission Date: 20140711
  Serious: Yes (Hospitalization)
  Sender: FDA-Public Use
  Company Number: US-ASTRAZENECA-2013SE91479

PATIENT
  Age: 58 Year
  Sex: Female
  Weight: 54.4 kg

DRUGS (14)
  1. NEXIUM [Suspect]
     Indication: GASTROOESOPHAGEAL REFLUX DISEASE
     Route: 048
     Dates: start: 2006, end: 20131210
  2. CALCIUM PLUS VITAMIN D [Concomitant]
     Indication: GASTRIC BYPASS
     Dosage: 315 200MG 2 PILLS TWICE DAILY
     Route: 048
     Dates: start: 2006
  3. B12 [Concomitant]
     Indication: ANAEMIA VITAMIN B12 DEFICIENCY
     Dosage: UNKNOWN QMONTHLY
     Route: 058
     Dates: start: 201304
  4. FERROUS SULFATE [Concomitant]
     Indication: BLOOD IRON DECREASED
     Route: 048
     Dates: start: 201304
  5. METOCLIPROMIDE [Concomitant]
     Indication: DYSPEPSIA
     Route: 048
     Dates: start: 201304
  6. MULTI VITAMIN [Concomitant]
     Indication: VITAMIN SUPPLEMENTATION
     Dosage: UNKNOWN DAILY
     Route: 048
     Dates: start: 201304
  7. OXYCODONE [Concomitant]
     Indication: PAIN
     Route: 048
     Dates: start: 201304
  8. FUROSEMIDE [Concomitant]
     Indication: DIURETIC THERAPY
     Route: 048
     Dates: start: 201304
  9. LORATIDINE [Concomitant]
     Indication: HYPERSENSITIVITY
     Route: 048
     Dates: start: 201304
  10. MERTAZAPINE [Concomitant]
     Indication: ANTIDEPRESSANT THERAPY
     Dosage: 15MG QHS
     Route: 048
     Dates: start: 201304
  11. RESPERIDONE [Concomitant]
     Indication: ANTIDEPRESSANT THERAPY
     Dosage: 4MG QHS
     Route: 048
     Dates: start: 201304
  12. VENLAFAXINE XR [Concomitant]
     Indication: ANTIDEPRESSANT THERAPY
     Route: 048
     Dates: start: 201304
  13. TRAZODONE [Concomitant]
     Indication: SLEEP DISORDER
     Route: 048
     Dates: start: 201304
  14. BUSPIRONE [Concomitant]
     Indication: ANXIETY
     Route: 048
     Dates: start: 201304

REACTIONS (3)
  - Haemorrhage [Unknown]
  - Vitamin D decreased [Unknown]
  - Drug dose omission [Unknown]
